FAERS Safety Report 21051545 (Version 1)
Quarter: 2022Q3

REPORT INFORMATION
  Report Type: Spontaneous
  Country: US (occurrence: US)
  Receive Date: 20220707
  Receipt Date: 20220707
  Transmission Date: 20221026
  Serious: No
  Sender: FDA-Public Use
  Company Number: US-GSKCCFUS-a0E8Y00001WfhjXUAR

PATIENT
  Age: 80 Year
  Sex: Female

DRUGS (1)
  1. BENLYSTA [Suspect]
     Active Substance: BELIMUMAB
     Indication: Systemic lupus erythematosus
     Dosage: UNK
     Dates: start: 20220704

REACTIONS (7)
  - Injection site haemorrhage [Unknown]
  - Exposure via skin contact [Unknown]
  - Device use error [Unknown]
  - Product administration error [Unknown]
  - Incorrect dose administered [Unknown]
  - Extra dose administered [Unknown]
  - Accidental exposure to product [Unknown]

NARRATIVE: CASE EVENT DATE: 20220704
